FAERS Safety Report 26189849 (Version 1)
Quarter: 2025Q4

REPORT INFORMATION
  Report Type: Spontaneous
  Country: CN (occurrence: CN)
  Receive Date: 20251223
  Receipt Date: 20251223
  Transmission Date: 20260117
  Serious: Yes (Hospitalization)
  Sender: ALEXION PHARMACEUTICALS
  Company Number: CN-ASTRAZENECA-202512CHN018301CN

PATIENT
  Age: 79 Year
  Sex: Female
  Weight: 62 kg

DRUGS (1)
  1. DAPAGLIFLOZIN [Suspect]
     Active Substance: DAPAGLIFLOZIN
     Indication: Hyperglycaemia
     Dosage: 10 MILLIGRAM, QD
     Route: 061
     Dates: start: 20250601, end: 20251215

REACTIONS (3)
  - Weight decreased [Recovering/Resolving]
  - Abdominal discomfort [Unknown]
  - Cough [Unknown]

NARRATIVE: CASE EVENT DATE: 20251215
